FAERS Safety Report 7250194-8 (Version None)
Quarter: 2011Q1

REPORT INFORMATION
  Report Type: 
  Country: None (occurrence: None)
  Receive Date: 20110128
  Receipt Date: 20110118
  Transmission Date: 20110831
  Serious: Yes (Other)
  Sender: FDA-Public Use
  Company Number: DE-BAYER-2011-005675

PATIENT

DRUGS (1)
  1. NEXAVAR [Suspect]
     Route: 048

REACTIONS (2)
  - LEUKOCYTOCLASTIC VASCULITIS [None]
  - MONOPARESIS [None]
